FAERS Safety Report 9925094 (Version 1)
Quarter: 2014Q1

REPORT INFORMATION
  Report Type: Spontaneous
  Country: US (occurrence: None)
  Receive Date: 20140225
  Receipt Date: 20140225
  Transmission Date: 20141002
  Serious: Yes (Disabling)
  Sender: FDA-Public Use
  Company Number: None

PATIENT
  Age: 46 Year
  Sex: Female
  Weight: 65.77 kg

DRUGS (1)
  1. LUPRON [Suspect]

REACTIONS (8)
  - Vertigo [None]
  - Dizziness [None]
  - Amnesia [None]
  - Tinnitus [None]
  - Anxiety [None]
  - Hot flush [None]
  - Emotional disorder [None]
  - Insomnia [None]
